FAERS Safety Report 8371566-4 (Version None)
Quarter: 2012Q2

REPORT INFORMATION
  Report Type: 
  Country: None (occurrence: None)
  Receive Date: 20120518
  Receipt Date: 20120509
  Transmission Date: 20120825
  Serious: Yes (Hospitalization)
  Sender: FDA-Public Use
  Company Number: US-ASTRAZENECA-2012SE27869

PATIENT
  Age: 75 Year
  Sex: Male

DRUGS (2)
  1. NEXIUM [Suspect]
     Route: 048
  2. PRILOSEC [Suspect]
     Route: 048

REACTIONS (8)
  - CARDIAC DISORDER [None]
  - FLATULENCE [None]
  - GASTRIC HAEMORRHAGE [None]
  - HEART RATE INCREASED [None]
  - DYSPEPSIA [None]
  - VOMITING [None]
  - STOMACH MASS [None]
  - CORONARY ARTERY OCCLUSION [None]
